FAERS Safety Report 5456690-8 (Version None)
Quarter: 2007Q3

REPORT INFORMATION
  Report Type: 
  Country: None (occurrence: None)
  Receive Date: 20070918
  Receipt Date: 20070906
  Transmission Date: 20080115
  Serious: Yes (Death, Life-Threatening, Other)
  Sender: FDA-Public Use
  Company Number: US-ELI_LILLY_AND_COMPANY-US200606002067

PATIENT
  Age: 9 Year
  Sex: Male

DRUGS (2)
  1. STRATTERA [Suspect]
     Indication: ATTENTION DEFICIT/HYPERACTIVITY DISORDER
     Dosage: 40 MG, DAILY (1/D)
     Dates: start: 20040214
  2. STRATTERA [Suspect]
     Dosage: 25 MG, DAILY (1/D)
     Dates: start: 20040210, end: 20040213

REACTIONS (2)
  - ASPHYXIA [None]
  - CARDIAC ARREST [None]
